FAERS Safety Report 4481889-7 (Version None)
Quarter: 2004Q4

REPORT INFORMATION
  Report Type: 
  Country: None (occurrence: None)
  Receive Date: 20041022
  Receipt Date: 20041011
  Transmission Date: 20050328
  Serious: Yes (Hospitalization)
  Sender: FDA-Public Use
  Company Number: FR-JNJFOC-20041003301

PATIENT
  Age: 72 Year
  Sex: Female
  Weight: 40 kg

DRUGS (3)
  1. REMICADE [Suspect]
     Route: 042
  2. REMICADE [Suspect]
     Indication: RHEUMATOID ARTHRITIS
     Dosage: PATIENT RECEIVED 2 INFUSIONS IN TOTAL.
     Route: 042
  3. ENDOXAN [Suspect]
     Indication: RHEUMATOID ARTHRITIS
     Route: 042

REACTIONS (12)
  - ALANINE AMINOTRANSFERASE INCREASED [None]
  - ASPARTATE AMINOTRANSFERASE INCREASED [None]
  - BLOOD ALKALINE PHOSPHATASE INCREASED [None]
  - BLOOD LACTATE DEHYDROGENASE INCREASED [None]
  - DIARRHOEA [None]
  - GAMMA-GLUTAMYLTRANSFERASE INCREASED [None]
  - GENERALISED OEDEMA [None]
  - GLUTATHIONE DECREASED [None]
  - HEPATIC ENZYME INCREASED [None]
  - INFECTION [None]
  - LIVER DISORDER [None]
  - PULMONARY OEDEMA [None]
